FAERS Safety Report 21604804 (Version 1)
Quarter: 2022Q4

REPORT INFORMATION
  Report Type: Spontaneous
  Country: FR (occurrence: FR)
  Receive Date: 20221116
  Receipt Date: 20221116
  Transmission Date: 20230112
  Serious: Yes (Hospitalization)
  Sender: FDA-Public Use
  Company Number: None

PATIENT
  Sex: Female

DRUGS (11)
  1. ALPHAGAN P [Suspect]
     Active Substance: BRIMONIDINE TARTRATE
     Indication: Product used for unknown indication
     Dosage: 1 DROP MORNING AND EVENING
     Route: 031
     Dates: start: 20210723
  2. DIAMOX SEQUELS [Suspect]
     Active Substance: ACETAZOLAMIDE
     Indication: Ocular hypertension
     Dosage: 250 MG 4 TIMES A DAY
     Route: 048
     Dates: start: 20210726, end: 20210729
  3. DIAMOX SEQUELS [Suspect]
     Active Substance: ACETAZOLAMIDE
     Dosage: 250 MG 3 TIMES A DAY
     Route: 048
     Dates: start: 20210723, end: 20210725
  4. LATANOPROST [Suspect]
     Active Substance: LATANOPROST
     Indication: Product used for unknown indication
     Dosage: 1 DROP AT NIGHT
     Route: 031
     Dates: start: 20210723, end: 20210803
  5. MANNITOL [Suspect]
     Active Substance: MANNITOL
     Indication: Product used for unknown indication
     Dosage: UNK
     Route: 042
     Dates: start: 20210723, end: 20210723
  6. AZITHROMYCIN [Suspect]
     Active Substance: AZITHROMYCIN
     Indication: Cataract operation
     Route: 031
     Dates: start: 20210722, end: 20210723
  7. DORZOLAMIDE HYDROCHLORIDE\TIMOLOL MALEATE [Suspect]
     Active Substance: DORZOLAMIDE HYDROCHLORIDE\TIMOLOL MALEATE
     Indication: Product used for unknown indication
     Dosage: 1 DROP MORNING AND EVENING
     Route: 031
     Dates: start: 20210723
  8. POTASSIUM CHLORIDE [Suspect]
     Active Substance: POTASSIUM CHLORIDE
     Indication: Product used for unknown indication
     Dosage: 600 MG MORNING AND EVENING
     Route: 048
     Dates: start: 20210723
  9. INDOMETHACIN [Suspect]
     Active Substance: INDOMETHACIN
     Indication: Cataract operation
     Dosage: 1 DROP 3 TIMES A DAY
     Route: 031
     Dates: start: 20210722, end: 20221103
  10. DEXAMETHASONE SODIUM PHOSPHATE [Suspect]
     Active Substance: DEXAMETHASONE SODIUM PHOSPHATE
     Indication: Cataract operation
     Route: 031
     Dates: start: 20210722, end: 20210723
  11. PILOCARPINE [Suspect]
     Active Substance: PILOCARPINE
     Indication: Product used for unknown indication
     Dosage: 1 DROP MORNING AND EVENING
     Route: 031
     Dates: start: 20210723, end: 20210726

REACTIONS (1)
  - Acute generalised exanthematous pustulosis [Recovered/Resolved with Sequelae]

NARRATIVE: CASE EVENT DATE: 20210725
